FAERS Safety Report 6973164-3 (Version None)
Quarter: 2010Q3

REPORT INFORMATION
  Report Type: 
  Country: None (occurrence: None)
  Receive Date: 20100909
  Receipt Date: 20100817
  Transmission Date: 20110219
  Serious: No
  Sender: FDA-Public Use
  Company Number: BR-ROCHE-722677

PATIENT
  Sex: Female
  Weight: 47 kg

DRUGS (4)
  1. BONIVA [Suspect]
     Indication: OSTEOPOROSIS
     Route: 048
     Dates: start: 20091201
  2. CHOLECALCIFEROL [Concomitant]
     Indication: OSTEOPOROSIS
     Dosage: STARTED IN 2003 OR 2004 DOSE : 100 MG
     Route: 048
     Dates: start: 20030101
  3. FRONTAL [Concomitant]
     Indication: ANXIETY
     Route: 048
     Dates: start: 19970101
  4. CRESTOR [Concomitant]
     Route: 048
     Dates: start: 20100601

REACTIONS (4)
  - BONE PAIN [None]
  - INTERVERTEBRAL DISC PROTRUSION [None]
  - MYALGIA [None]
  - OROPHARYNGEAL PAIN [None]
